FAERS Safety Report 13924338 (Version 1)
Quarter: 2017Q3

REPORT INFORMATION
  Report Type: Spontaneous
  Country: US (occurrence: US)
  Receive Date: 20170831
  Receipt Date: 20170831
  Transmission Date: 20171127
  Serious: Yes (Life-Threatening, Other)
  Sender: FDA-Public Use
  Company Number: US-JNJFOC-20170824617

PATIENT
  Age: 20 Year
  Sex: Male

DRUGS (4)
  1. LOPERAMIDE HYDROCHLORIDE. [Suspect]
     Active Substance: LOPERAMIDE HYDROCHLORIDE
     Indication: SUICIDE ATTEMPT
     Route: 065
  2. HYDROXYZINE [Suspect]
     Active Substance: HYDROXYZINE HYDROCHLORIDE
     Indication: SUICIDE ATTEMPT
     Route: 065
  3. LOPERAMIDE HYDROCHLORIDE. [Suspect]
     Active Substance: LOPERAMIDE HYDROCHLORIDE
     Route: 065
  4. CHLORPROMAZINE. [Suspect]
     Active Substance: CHLORPROMAZINE
     Indication: SUICIDE ATTEMPT
     Route: 065

REACTIONS (3)
  - Tachycardia [Unknown]
  - Face oedema [Unknown]
  - Intentional overdose [Unknown]
